FAERS Safety Report 24990321 (Version 2)
Quarter: 2025Q1

REPORT INFORMATION
  Report Type: Spontaneous
  Country: US (occurrence: US)
  Receive Date: 20250220
  Receipt Date: 20250226
  Transmission Date: 20250409
  Serious: No
  Sender: AMGEN
  Company Number: US-AMGEN-USASP2025030714

PATIENT
  Age: 62 Year
  Sex: Female

DRUGS (7)
  1. PROLIA [Suspect]
     Active Substance: DENOSUMAB
     Indication: Osteoporosis
     Route: 065
     Dates: start: 2012
  2. PROLIA [Suspect]
     Active Substance: DENOSUMAB
     Dosage: UNK UNK, Q6MO (FIRST DOSE)
     Route: 065
     Dates: start: 202309
  3. PROLIA [Suspect]
     Active Substance: DENOSUMAB
     Dosage: UNK UNK, Q6MO (SECOND DOSE)
     Route: 065
     Dates: start: 202404
  4. PROLIA [Suspect]
     Active Substance: DENOSUMAB
     Dosage: UNK UNK, Q6MO (THIRD DOSE)
     Route: 065
     Dates: start: 20241029
  5. TYMLOS [Concomitant]
     Active Substance: ABALOPARATIDE
     Route: 065
  6. RECLAST [Concomitant]
     Active Substance: ZOLEDRONIC ACID
     Route: 065
     Dates: start: 2019, end: 2023
  7. TYLENOL [Concomitant]
     Active Substance: ACETAMINOPHEN

REACTIONS (11)
  - Therapeutic product effect decreased [Unknown]
  - Back pain [Recovered/Resolved]
  - Arthralgia [Not Recovered/Not Resolved]
  - Muscle spasms [Not Recovered/Not Resolved]
  - Muscular weakness [Not Recovered/Not Resolved]
  - Palpitations [Not Recovered/Not Resolved]
  - Tibia fracture [Unknown]
  - Bone pain [Unknown]
  - Cartilage injury [Unknown]
  - Gastrointestinal disorder [Unknown]
  - Insomnia [Unknown]

NARRATIVE: CASE EVENT DATE: 20230901
